FAERS Safety Report 8207075-2 (Version None)
Quarter: 2012Q1

REPORT INFORMATION
  Report Type: 
  Country: None (occurrence: None)
  Receive Date: 20120314
  Receipt Date: 20120306
  Transmission Date: 20120608
  Serious: Yes (Hospitalization, Other)
  Sender: FDA-Public Use
  Company Number: US-BAYER-2012-016287

PATIENT
  Age: 48 Year
  Sex: Female
  Weight: 150 kg

DRUGS (2)
  1. YAZ [Suspect]
     Indication: MENSTRUAL CYCLE MANAGEMENT
     Dosage: UNK
     Route: 048
     Dates: start: 20030101, end: 20120116
  2. FLUOXETINE [Concomitant]
     Dosage: 2 DF, QD
     Route: 048

REACTIONS (4)
  - DYSPNOEA [None]
  - FLATULENCE [None]
  - PULMONARY EMBOLISM [None]
  - BREAST PAIN [None]
